FAERS Safety Report 7893733-6 (Version None)
Quarter: 2011Q4

REPORT INFORMATION
  Report Type: 
  Country: None (occurrence: None)
  Receive Date: 20111104
  Receipt Date: 20111027
  Transmission Date: 20120403
  Serious: Yes (Disabling)
  Sender: FDA-Public Use
  Company Number: PHHY2011GB94825

PATIENT
  Age: 64 Year
  Sex: Male

DRUGS (1)
  1. OXALIPLATIN [Suspect]
     Indication: COLORECTAL CANCER
     Dosage: 130 MG/M2, UNK
     Route: 042

REACTIONS (4)
  - MOBILITY DECREASED [None]
  - PAIN [None]
  - EXTRAVASATION [None]
  - SKIN INDURATION [None]
